FAERS Safety Report 15742488 (Version 1)
Quarter: 2018Q4

REPORT INFORMATION
  Report Type: Spontaneous
  Country: US (occurrence: US)
  Receive Date: 20181219
  Receipt Date: 20181219
  Transmission Date: 20190205
  Serious: No
  Sender: FDA-Public Use
  Company Number: US-GILEAD-2018-0381168

PATIENT
  Age: 53 Year
  Sex: Male

DRUGS (1)
  1. RANEXA [Suspect]
     Active Substance: RANOLAZINE
     Indication: PRODUCT USED FOR UNKNOWN INDICATION
     Dosage: 500 MG, QD
     Route: 065

REACTIONS (7)
  - Wrong technique in product usage process [Unknown]
  - Impaired work ability [Unknown]
  - Back pain [Unknown]
  - Eructation [Unknown]
  - Nausea [Unknown]
  - Gastric disorder [Unknown]
  - Malaise [Unknown]
